FAERS Safety Report 15332020 (Version 1)
Quarter: 2018Q3

REPORT INFORMATION
  Report Type: Report from Study
  Country: CR (occurrence: CR)
  Receive Date: 20180829
  Receipt Date: 20180829
  Transmission Date: 20181010
  Serious: Yes (Other)
  Sender: FDA-Public Use
  Company Number: PHHY2018CR081297

PATIENT
  Age: 97 Year
  Sex: Female

DRUGS (1)
  1. CO?DIOVAN [Suspect]
     Active Substance: HYDROCHLOROTHIAZIDE\VALSARTAN
     Indication: PRODUCT USED FOR UNKNOWN INDICATION
     Dosage: HYDROCHLOROTHIAZIDE 12.5 MG, VALSARTAN 160 MG
     Route: 065

REACTIONS (1)
  - Gastrointestinal haemorrhage [Unknown]
